FAERS Safety Report 8979670 (Version 3)
Quarter: 2013Q1

REPORT INFORMATION
  Report Type: Report from Study
  Country: US (occurrence: US)
  Receive Date: 20121221
  Receipt Date: 20130211
  Transmission Date: 20140127
  Serious: Yes (Hospitalization)
  Sender: FDA-Public Use
  Company Number: US-ACTELION-A-US2012-75785

PATIENT
  Age: 61 Year
  Sex: Female

DRUGS (4)
  1. TRACLEER [Suspect]
     Indication: PULMONARY ARTERIAL HYPERTENSION
     Dosage: 125 MG, BID
     Route: 048
     Dates: start: 201211
  2. TRACLEER [Suspect]
     Dosage: 62.5 MG, BID
     Route: 048
     Dates: start: 2012
  3. DIGOXIN [Suspect]
  4. ADVAIR [Suspect]

REACTIONS (13)
  - Transient ischaemic attack [Recovered/Resolved]
  - Dysarthria [Recovered/Resolved]
  - Oedema [Recovered/Resolved]
  - Fatigue [Unknown]
  - Dyspnoea [Unknown]
  - Asthenia [Unknown]
  - Drug dose omission [Unknown]
  - Weight increased [Recovered/Resolved]
  - Gait disturbance [Recovered/Resolved]
  - Anaemia [Not Recovered/Not Resolved]
  - Alopecia [Recovering/Resolving]
  - Dry skin [Recovering/Resolving]
  - Rhinorrhoea [Not Recovered/Not Resolved]
